FAERS Safety Report 5884913-X (Version None)
Quarter: 2008Q3

REPORT INFORMATION
  Report Type: 
  Country: None (occurrence: None)
  Receive Date: 20080916
  Receipt Date: 20080908
  Transmission Date: 20090109
  Serious: Yes (Hospitalization)
  Sender: FDA-Public Use
  Company Number: A0743768A

PATIENT
  Age: 79 Year
  Sex: Female
  Weight: 59 kg

DRUGS (4)
  1. ROSIGLITAZONE [Suspect]
     Dosage: 8MG PER DAY
     Route: 048
     Dates: start: 20071127
  2. ARICEPT [Concomitant]
     Dosage: 10MGD PER DAY
     Route: 048
     Dates: start: 20070420
  3. PRESTARIUM [Concomitant]
     Dosage: 4MG PER DAY
     Route: 048
     Dates: start: 20071201
  4. LORADUR MITTE [Concomitant]
     Dosage: 2.5MG PER DAY
     Route: 048
     Dates: start: 20060101

REACTIONS (3)
  - BRADYCARDIA [None]
  - MYOCARDIAL ISCHAEMIA [None]
  - PALPITATIONS [None]
